FAERS Safety Report 14374883 (Version 1)
Quarter: 2018Q1

REPORT INFORMATION
  Report Type: Spontaneous
  Country: US (occurrence: US)
  Receive Date: 20180110
  Receipt Date: 20180110
  Transmission Date: 20180509
  Serious: No
  Sender: FDA-Public Use
  Company Number: None

PATIENT
  Age: 56 Year
  Sex: Female

DRUGS (2)
  1. CAPECITABINE 150MG WEST-WARD PHARMACEUTICAL CORP [Suspect]
     Active Substance: CAPECITABINE
     Indication: PANCREATIC CARCINOMA
     Dosage: FREQUENCY - TWICE DAILY ON DAYS 1 TO 14 EVERY 21 DAY CYCLE
     Route: 048
     Dates: start: 20170927
  2. CAPECITABINE 500 MG WEST-WARD PHARMACEUTICAL CORP [Suspect]
     Active Substance: CAPECITABINE
     Indication: PANCREATIC CARCINOMA
     Dosage: FREQUENCY - TWICE DAILY ON DAYS 1-14 EVERY 21 DAY CYCLE
     Route: 048
     Dates: start: 20170927

REACTIONS (2)
  - Paraesthesia [None]
  - Oedema peripheral [None]

NARRATIVE: CASE EVENT DATE: 20171227
